FAERS Safety Report 5206805-1 (Version None)
Quarter: 2006Q4

REPORT INFORMATION
  Report Type: 
  Country: None (occurrence: None)
  Receive Date: 20061026
  Receipt Date: 20060724
  Transmission Date: 20070319
  Serious: No
  Sender: FDA-Public Use
  Company Number: 2006092041

PATIENT
  Sex: Female

DRUGS (8)
  1. LYRICA [Suspect]
     Indication: DRUG USE FOR UNKNOWN INDICATION
  2. ANXIOLYTICS (ANXIOLYTICS) [Suspect]
     Indication: ANXIETY
  3. ANTIDEPERSSANTS (ANTIDEPRESSANTS) [Suspect]
     Indication: DRUG USE FOR UNKNOWN INDICATION
  4. ANALGESICS (ANALGESICS) [Suspect]
     Indication: DRUG USE FOR UNKNOWN INDICATION
  5. LORTAB [Concomitant]
  6. ALL OTHER THERAPEUTIC PRODUCTS (ALL OTHER THERAPEUTIC PRODUCTS) [Concomitant]
  7. CYMBALTA [Concomitant]
  8. AMBIEN [Concomitant]

REACTIONS (4)
  - DIZZINESS [None]
  - SEDATION [None]
  - SOMNOLENCE [None]
  - WEIGHT INCREASED [None]
